FAERS Safety Report 6660297-4 (Version None)
Quarter: 2010Q1

REPORT INFORMATION
  Report Type: 
  Country: None (occurrence: None)
  Receive Date: 20100331
  Receipt Date: 20100322
  Transmission Date: 20100710
  Serious: No
  Sender: FDA-Public Use
  Company Number: 2010BI003728

PATIENT
  Age: 40 Year
  Sex: Female

DRUGS (1)
  1. TYSABRI [Suspect]
     Indication: MULTIPLE SCLEROSIS
     Route: 042
     Dates: start: 20070720

REACTIONS (4)
  - HEADACHE [None]
  - HYPOAESTHESIA [None]
  - PARAESTHESIA [None]
  - STRESS [None]
